FAERS Safety Report 11360719 (Version 2)
Quarter: 2015Q3

REPORT INFORMATION
  Report Type: Not Available
  Country: FR (occurrence: FR)
  Receive Date: 20150810
  Receipt Date: 20150918
  Transmission Date: 20151125
  Serious: Yes (Hospitalization)
  Sender: FDA-Public Use
  Company Number: FR-BEH-2015052817

PATIENT
  Age: 46 Year
  Sex: Female

DRUGS (12)
  1. CHLORHYDRATE OF TRAMADOL [Concomitant]
  2. LYRICA [Concomitant]
     Active Substance: PREGABALIN
  3. INEXIUM [Concomitant]
     Active Substance: ESOMEPRAZOLE
  4. PRIVIGEN [Suspect]
     Active Substance: HUMAN IMMUNOGLOBULIN G
     Indication: DERMATOMYOSITIS
     Dosage: 5 VIALS
  5. METHOTREXATE [Concomitant]
     Active Substance: METHOTREXATE
  6. DIFFU K [Concomitant]
     Active Substance: POTASSIUM CHLORIDE
  7. PREDNISONE. [Concomitant]
     Active Substance: PREDNISONE
  8. PRIVIGEN [Suspect]
     Active Substance: HUMAN IMMUNOGLOBULIN G
     Dosage: 2G/KG/D
     Route: 042
     Dates: start: 20141114, end: 20141117
  9. FOLIC ACID. [Concomitant]
     Active Substance: FOLIC ACID
  10. PRIVIGEN [Suspect]
     Active Substance: HUMAN IMMUNOGLOBULIN G
     Dosage: 5 VIALS
  11. XYZALL [Concomitant]
     Active Substance: LEVOCETIRIZINE DIHYDROCHLORIDE
  12. FOSAMAX [Concomitant]
     Active Substance: ALENDRONATE SODIUM

REACTIONS (2)
  - Hepatocellular injury [Recovered/Resolved]
  - Haemolytic anaemia [Recovered/Resolved]

NARRATIVE: CASE EVENT DATE: 20141120
